FAERS Safety Report 4888410-X (Version None)
Quarter: 2006Q1

REPORT INFORMATION
  Report Type: 
  Country: None (occurrence: None)
  Receive Date: 20060119
  Receipt Date: 20060105
  Transmission Date: 20060701
  Serious: Yes (Hospitalization)
  Sender: FDA-Public Use
  Company Number: 2006-BP-00139RO

PATIENT
  Age: 63 Year
  Sex: Male

DRUGS (2)
  1. PREDNISONE TAB [Suspect]
     Indication: PROSTATE CANCER
     Dosage: 10 MG DAILY, PO
     Route: 048
     Dates: start: 20051201, end: 20051220
  2. MITOXANTRONE [Suspect]
     Indication: PROSTATE CANCER
     Dosage: 12 MG/M2 (22.5 MG) EVERY THREE  WEEKS (1 IN 3 WK), IV
     Route: 042
     Dates: start: 20051201, end: 20051220

REACTIONS (2)
  - NEUTROPENIA [None]
  - PNEUMONIA [None]
